FAERS Safety Report 6754704-6 (Version None)
Quarter: 2010Q2

REPORT INFORMATION
  Report Type: 
  Country: None (occurrence: None)
  Receive Date: 20100601
  Receipt Date: 20100527
  Transmission Date: 20101027
  Serious: Yes (Hospitalization, Other)
  Sender: FDA-Public Use
  Company Number: 1000013870

PATIENT
  Age: 64 Year
  Sex: Female

DRUGS (8)
  1. CITALOPRAM HYDROBROMIDE [Suspect]
     Indication: DEPRESSION
     Dosage: 20 MG, ORAL
     Route: 048
  2. CITALOPRAM HYDROBROMIDE [Suspect]
     Indication: DEPRESSION
     Dosage: 10 MG, ORAL
     Route: 048
  3. INSULIN NOVOMIX [Concomitant]
  4. LOSARTAN (TABLETS) [Concomitant]
  5. VERAPAMIL [Concomitant]
  6. ATORVASTATIN [Concomitant]
  7. ACETYLSALICYLIC ACID [Concomitant]
  8. HYDROCHLOROTHIAZIDE [Concomitant]

REACTIONS (9)
  - CHOLELITHIASIS [None]
  - CULTURE URINE POSITIVE [None]
  - ELECTROLYTE IMBALANCE [None]
  - ENTEROCOCCAL INFECTION [None]
  - GENERAL PHYSICAL HEALTH DETERIORATION [None]
  - HYPOKALAEMIA [None]
  - HYPONATRAEMIA [None]
  - IATROGENIC INJURY [None]
  - LOSS OF CONSCIOUSNESS [None]
